FAERS Safety Report 4365643-2 (Version None)
Quarter: 2004Q2

REPORT INFORMATION
  Report Type: 
  Country: None (occurrence: None)
  Receive Date: 20040522
  Receipt Date: 20040510
  Transmission Date: 20050107
  Serious: Yes (Other)
  Sender: FDA-Public Use
  Company Number: B0332566A

PATIENT

DRUGS (2)
  1. ALKERAN [Suspect]
     Dosage: 300 MG/M2
  2. AMIFOSTINE [Concomitant]

REACTIONS (4)
  - ATRIAL FIBRILLATION [None]
  - BONE MARROW TRANSPLANT [None]
  - DRUG TOXICITY [None]
  - MULTI-ORGAN FAILURE [None]
